FAERS Safety Report 4683843-9 (Version None)
Quarter: 2005Q2

REPORT INFORMATION
  Report Type: 
  Country: None (occurrence: None)
  Receive Date: 20050602
  Receipt Date: 20050414
  Transmission Date: 20051028
  Serious: No
  Sender: FDA-Public Use
  Company Number: 200421033BWH

PATIENT
  Sex: Male

DRUGS (1)
  1. LEVITRA [Suspect]
     Indication: ERECTILE DYSFUNCTION
     Dosage: SEE IMAGE
     Route: 048

REACTIONS (4)
  - GASTROINTESTINAL DISORDER [None]
  - HEADACHE [None]
  - NASAL CONGESTION [None]
  - PHOTOPHOBIA [None]
